FAERS Safety Report 5298339-3 (Version None)
Quarter: 2007Q2

REPORT INFORMATION
  Report Type: 
  Country: None (occurrence: None)
  Receive Date: 20070416
  Receipt Date: 20070406
  Transmission Date: 20071010
  Serious: Yes (Death, Life-Threatening)
  Sender: FDA-Public Use
  Company Number: FR-PFIZER INC-2007028521

PATIENT
  Age: 95 Year
  Sex: Female

DRUGS (16)
  1. ALDACTONE [Suspect]
     Route: 048
  2. COLCHIMAX (FRANCE) [Suspect]
     Route: 048
  3. ALLOPURINOL [Suspect]
     Route: 048
  4. FUROSEMIDE [Suspect]
     Route: 048
  5. FOZITEC [Suspect]
     Route: 048
  6. AVANDIA [Suspect]
     Route: 048
  7. ADANCOR [Concomitant]
  8. KARDEGIC [Concomitant]
  9. CARDENSIEL [Concomitant]
  10. LASIX [Concomitant]
  11. PARIET [Concomitant]
  12. STABLON [Concomitant]
  13. ALPRAZOLAM [Concomitant]
  14. ZOLPIDEM [Concomitant]
  15. DIOSMECTITE [Concomitant]
  16. ARESTAL [Concomitant]

REACTIONS (1)
  - RENAL FAILURE ACUTE [None]
